FAERS Safety Report 8305819-2 (Version None)
Quarter: 2012Q2

REPORT INFORMATION
  Report Type: 
  Country: None (occurrence: None)
  Receive Date: 20120423
  Receipt Date: 20120417
  Transmission Date: 20120825
  Serious: Yes (Hospitalization, Other)
  Sender: FDA-Public Use
  Company Number: VE-PFIZER INC-2012091046

PATIENT
  Age: 59 Year
  Sex: Female

DRUGS (1)
  1. LIPITOR [Suspect]
     Indication: HYPERCHOLESTEROLAEMIA
     Dosage: 20 MG, 1X/DAY
     Route: 048
     Dates: start: 20111001, end: 20111001

REACTIONS (6)
  - DRY THROAT [None]
  - APHONIA [None]
  - TREMOR [None]
  - VISION BLURRED [None]
  - RASH [None]
  - POISONING [None]
